FAERS Safety Report 12542801 (Version 4)
Quarter: 2016Q3

REPORT INFORMATION
  Report Type: Spontaneous
  Country: FR (occurrence: FR)
  Receive Date: 20160709
  Receipt Date: 20160919
  Transmission Date: 20161109
  Serious: Yes (Other)
  Sender: FDA-Public Use
  Company Number: FR-BRISTOL-MYERS SQUIBB COMPANY-BMS-2016-054983

PATIENT
  Age: 53 Year
  Sex: Female

DRUGS (5)
  1. OPDIVO [Suspect]
     Active Substance: NIVOLUMAB
     Dosage: 117 MG, QCYCLE
     Route: 042
     Dates: start: 20160401, end: 20160401
  2. OPDIVO [Suspect]
     Active Substance: NIVOLUMAB
     Dosage: 117 MG, QCYCLE
     Route: 042
     Dates: start: 20160503, end: 20160503
  3. OPDIVO [Suspect]
     Active Substance: NIVOLUMAB
     Dosage: 117 MG, QCYCLE
     Route: 042
     Dates: start: 20160517, end: 20160517
  4. OPDIVO [Suspect]
     Active Substance: NIVOLUMAB
     Indication: METASTATIC BRONCHIAL CARCINOMA
     Dosage: 117 MG, QCYCLE
     Route: 042
     Dates: start: 20160315, end: 20160315
  5. OPDIVO [Suspect]
     Active Substance: NIVOLUMAB
     Dosage: 117 MG, QCYCLE
     Route: 042
     Dates: start: 20160415, end: 20160415

REACTIONS (5)
  - Gammopathy [Unknown]
  - Eosinophilia [Recovering/Resolving]
  - Antineutrophil cytoplasmic antibody increased [Unknown]
  - Cough [Unknown]
  - Malignant neoplasm progression [Unknown]

NARRATIVE: CASE EVENT DATE: 20160517
